FAERS Safety Report 18489549 (Version 1)
Quarter: 2020Q4

REPORT INFORMATION
  Report Type: Spontaneous
  Country: JP (occurrence: JP)
  Receive Date: 20201111
  Receipt Date: 20201111
  Transmission Date: 20210114
  Serious: Yes (Other)
  Sender: FDA-Public Use
  Company Number: JP-STRIDES ARCOLAB LIMITED-2020SP013634

PATIENT
  Age: 48 Year
  Sex: Female

DRUGS (3)
  1. SALAZOSULFAPYRIDINE [Concomitant]
     Active Substance: SULFASALAZINE
     Indication: RHEUMATOID ARTHRITIS
     Dosage: UNK
     Route: 065
  2. METHOTREXATE. [Concomitant]
     Active Substance: METHOTREXATE
     Indication: RHEUMATOID ARTHRITIS
     Dosage: UNK
     Route: 065
  3. PREDNISOLONE. [Suspect]
     Active Substance: PREDNISOLONE
     Indication: RHEUMATOID ARTHRITIS
     Dosage: UNK
     Route: 065

REACTIONS (11)
  - Cardiomegaly [Recovered/Resolved]
  - Hypertrophy [Recovered/Resolved]
  - Coarctation of the aorta [Unknown]
  - Left atrial volume abnormal [Recovered/Resolved]
  - Condition aggravated [Unknown]
  - Stenosis [Unknown]
  - Kidney congestion [Recovered/Resolved]
  - Atrial pressure increased [Recovered/Resolved]
  - Cardiac failure congestive [Recovered/Resolved]
  - Ejection fraction decreased [Recovered/Resolved]
  - Takayasu^s arteritis [Unknown]
